FAERS Safety Report 10906266 (Version 1)
Quarter: 2015Q1

REPORT INFORMATION
  Report Type: Spontaneous
  Country: JP (occurrence: JP)
  Receive Date: 20150311
  Receipt Date: 20150311
  Transmission Date: 20150721
  Serious: Yes (Other)
  Sender: FDA-Public Use
  Company Number: JP-BRISTOL-MYERS SQUIBB COMPANY-BMS-2015-010426

PATIENT
  Age: 67 Year
  Sex: Female

DRUGS (3)
  1. ORENCIA [Suspect]
     Active Substance: ABATACEPT
     Indication: RHEUMATOID ARTHRITIS
     Dosage: 125 MG, UNK
     Route: 058
     Dates: start: 20141016, end: 20150205
  2. ORENCIA [Suspect]
     Active Substance: ABATACEPT
     Dosage: 250 UNK, UNK
     Route: 042
     Dates: start: 20140501, end: 20140918
  3. ORENCIA [Suspect]
     Active Substance: ABATACEPT
     Indication: RHEUMATOID ARTHRITIS
     Dosage: 250 MG, UNK
     Route: 042
     Dates: start: 20140501, end: 20140918

REACTIONS (1)
  - Platelet count decreased [Unknown]
